FAERS Safety Report 4498375-0 (Version None)
Quarter: 2004Q4

REPORT INFORMATION
  Report Type: 
  Country: None (occurrence: None)
  Receive Date: 20041105
  Receipt Date: 20041025
  Transmission Date: 20050328
  Serious: Yes (Disabling)
  Sender: FDA-Public Use
  Company Number: TUK2004A00122

PATIENT
  Age: 46 Year
  Sex: Female

DRUGS (3)
  1. ACTOS [Suspect]
     Dosage: 15 MG
     Route: 048
     Dates: start: 20040923, end: 20041001
  2. HYDROXYZINE [Concomitant]
  3. INSULIN [Concomitant]

REACTIONS (4)
  - PAIN [None]
  - RASH MACULO-PAPULAR [None]
  - RASH PUSTULAR [None]
  - SKIN HYPERTROPHY [None]
